FAERS Safety Report 17081010 (Version 1)
Quarter: 2019Q4

REPORT INFORMATION
  Report Type: Spontaneous
  Country: CN (occurrence: CN)
  Receive Date: 20191127
  Receipt Date: 20191127
  Transmission Date: 20200122
  Serious: Yes (Other)
  Sender: FDA-Public Use
  Company Number: CN-PFIZER INC-2019505511

PATIENT
  Age: 34 Year
  Sex: Female

DRUGS (2)
  1. LIGUSTRAZINE PHOSPHATE. [Concomitant]
     Active Substance: LIGUSTRAZINE PHOSPHATE
     Indication: CARDIOVASCULAR DISORDER
     Dosage: 0.1 G, 1X/DAY
     Route: 041
     Dates: start: 20191111, end: 20191114
  2. METHYLPREDNISOLONE SODIUM SUCCINATE. [Suspect]
     Active Substance: METHYLPREDNISOLONE SODIUM SUCCINATE
     Indication: IMMUNOSUPPRESSION
     Dosage: 30 MG, 1X/DAY
     Route: 041
     Dates: start: 20191108, end: 20191114

REACTIONS (7)
  - Wheezing [Recovered/Resolved]
  - Hypertension [Recovering/Resolving]
  - Chills [Recovered/Resolved]
  - Dizziness [Recovered/Resolved]
  - Musculoskeletal chest pain [Recovered/Resolved]
  - Chest discomfort [Recovered/Resolved]
  - Body temperature increased [Recovered/Resolved]

NARRATIVE: CASE EVENT DATE: 20191114
